FAERS Safety Report 5682749-6 (Version None)
Quarter: 2008Q1

REPORT INFORMATION
  Report Type: 
  Country: None (occurrence: None)
  Receive Date: 20080326
  Receipt Date: 20080326
  Transmission Date: 20080703
  Serious: Yes (Hospitalization)
  Sender: FDA-Public Use
  Company Number: None

PATIENT
  Age: 75 Year
  Sex: Female
  Weight: 70.31 kg

DRUGS (2)
  1. AZACTAM [Suspect]
     Indication: OSTEOMYELITIS
     Dosage: 2 GM EVERY 8 HOURS IV
     Route: 042
     Dates: start: 20080318, end: 20080320
  2. VANCOMYCIN [Suspect]
     Indication: OSTEOMYELITIS
     Dosage: 1 GM EVERY 18 HOURS IV
     Route: 042
     Dates: start: 20080318, end: 20080320

REACTIONS (4)
  - INFUSION SITE ERYTHEMA [None]
  - INFUSION SITE RASH [None]
  - INFUSION SITE WARMTH [None]
  - RASH ERYTHEMATOUS [None]
